FAERS Safety Report 5207917-9 (Version None)
Quarter: 2007Q1

REPORT INFORMATION
  Report Type: 
  Country: None (occurrence: None)
  Receive Date: 20070115
  Receipt Date: 20070102
  Transmission Date: 20070707
  Serious: Yes (Congenital Anomaly)
  Sender: FDA-Public Use
  Company Number: US-JNJFOC-20060904866

PATIENT
  Sex: Male

DRUGS (5)
  1. TOPAMAX [Suspect]
  2. TOPAMAX [Suspect]
     Indication: DRUG EXPOSURE DURING PREGNANCY
     Dosage: MONOTHERAPY FROM THE TIME OF CONCEPTION THROUGH 3-4 MONTHS OF PREGNANCY
  3. KEPPRA [Suspect]
     Indication: DRUG EXPOSURE DURING PREGNANCY
     Dosage: 1AM AND 3PM
  4. PRENATAL VITAMINS [Concomitant]
  5. FOLIC ACID [Concomitant]
     Route: 064

REACTIONS (4)
  - CRYPTORCHISM [None]
  - EAGLE BARRETT SYNDROME [None]
  - TALIPES [None]
  - URINARY TRACT MALFORMATION [None]
